FAERS Safety Report 10410309 (Version 1)
Quarter: 2014Q3

REPORT INFORMATION
  Report Type: Spontaneous
  Country: US (occurrence: US)
  Receive Date: 20140826
  Receipt Date: 20140826
  Transmission Date: 20150326
  Serious: Yes (Disabling)
  Sender: FDA-Public Use
  Company Number: US-PFIZER INC-2014234451

PATIENT
  Age: 42 Year
  Sex: Female
  Weight: 72.56 kg

DRUGS (6)
  1. SOMA [Concomitant]
     Active Substance: CARISOPRODOL
     Dosage: 350 MG, 3X/DAY
  2. LYRICA [Suspect]
     Active Substance: PREGABALIN
     Indication: FIBROMYALGIA
     Dosage: 100 MG, 3X/DAY
     Dates: start: 2009
  3. XANAX [Concomitant]
     Active Substance: ALPRAZOLAM
     Dosage: UNK, AS NEEDED
  4. LYRICA [Suspect]
     Active Substance: PREGABALIN
     Indication: PAIN
  5. OXYCODONE [Concomitant]
     Active Substance: OXYCODONE
     Dosage: 30 MG, 6X/DAY
  6. RITALIN [Concomitant]
     Active Substance: METHYLPHENIDATE HYDROCHLORIDE
     Dosage: 20 MG, 3X/DAY

REACTIONS (2)
  - Osteoarthritis [Unknown]
  - Arthritis [Unknown]

NARRATIVE: CASE EVENT DATE: 2013
